FAERS Safety Report 10841622 (Version 4)
Quarter: 2017Q1

REPORT INFORMATION
  Report Type: Report from Study
  Country: US (occurrence: US)
  Receive Date: 20150220
  Receipt Date: 20170315
  Transmission Date: 20170428
  Serious: Yes (Death, Life-Threatening, Hospitalization, Other)
  Sender: FDA-Public Use
  Company Number: US-009507513-1502USA004693

PATIENT
  Sex: Female

DRUGS (14)
  1. DEXAMETHASONE. [Concomitant]
     Active Substance: DEXAMETHASONE
     Dosage: 10 MG/M2, TWICE A DAY; DAYS 22-26
  2. ZOLINZA [Suspect]
     Active Substance: VORINOSTAT
     Indication: ACUTE LYMPHOCYTIC LEUKAEMIA RECURRENT
     Dosage: 180 MG/M2/DOSE, DAYS 3-10
     Route: 048
  3. DECITABINE. [Suspect]
     Active Substance: DECITABINE
     Dosage: 15 MG/M2, DAYS 15-21
  4. VINCRISTINE SULFATE. [Concomitant]
     Active Substance: VINCRISTINE SULFATE
     Dosage: 1.5 MG/M2, DAY 17
  5. VINCRISTINE SULFATE. [Concomitant]
     Active Substance: VINCRISTINE SULFATE
     Dosage: 1.5 MG/M2, DAY 31
  6. VINCRISTINE SULFATE. [Concomitant]
     Active Substance: VINCRISTINE SULFATE
     Indication: ACUTE LYMPHOCYTIC LEUKAEMIA RECURRENT
     Dosage: 1.5 MG/M2, DAY 10
  7. METHOTREXATE. [Concomitant]
     Active Substance: METHOTREXATE
     Indication: ACUTE LYMPHOCYTIC LEUKAEMIA RECURRENT
     Dosage: DOSED ACCORDING TO AGE AND CNS STATUS
     Route: 037
  8. DECITABINE. [Suspect]
     Active Substance: DECITABINE
     Indication: ACUTE LYMPHOCYTIC LEUKAEMIA RECURRENT
     Dosage: 15 MG/M2, DAYS 1-7
  9. VINCRISTINE SULFATE. [Concomitant]
     Active Substance: VINCRISTINE SULFATE
     Dosage: 1.5 MG/M2, DAY 24
  10. MITOXANTRONE HYDROCHLORIDE. [Concomitant]
     Active Substance: MITOXANTRONE HYDROCHLORIDE
     Indication: ACUTE LYMPHOCYTIC LEUKAEMIA RECURRENT
     Dosage: 10 MG/M2, DAY 8 AND 9
  11. PEGASPARGASE [Concomitant]
     Active Substance: PEGASPARGASE
     Indication: ACUTE LYMPHOCYTIC LEUKAEMIA RECURRENT
     Dosage: 2500 IU/M2, DAY 10
  12. ZOLINZA [Suspect]
     Active Substance: VORINOSTAT
     Dosage: 180 MG/M2/DOSE, DAYS 17-24
     Route: 048
  13. DEXAMETHASONE. [Concomitant]
     Active Substance: DEXAMETHASONE
     Indication: ACUTE LYMPHOCYTIC LEUKAEMIA RECURRENT
     Dosage: 10 MG/M2, TWICE A DAY; DAYS 8-12
  14. PEGASPARGASE [Concomitant]
     Active Substance: PEGASPARGASE
     Dosage: 2500 IU/M2, DAY 24

REACTIONS (4)
  - Hyperbilirubinaemia [Unknown]
  - Systemic mycosis [Fatal]
  - Cholestasis [Unknown]
  - Hepatic steatosis [Unknown]
